FAERS Safety Report 4753887-7 (Version None)
Quarter: 2005Q3

REPORT INFORMATION
  Report Type: 
  Country: None (occurrence: None)
  Receive Date: 20050826
  Receipt Date: 20050722
  Transmission Date: 20060218
  Serious: Yes (Hospitalization)
  Sender: FDA-Public Use
  Company Number: HQWYE435525JUL05

PATIENT
  Sex: Female

DRUGS (5)
  1. ENBREL [Suspect]
     Indication: RHEUMATOID ARTHRITIS
     Route: 058
     Dates: start: 20050627, end: 20050719
  2. RHEUMATREX [Concomitant]
     Dosage: DOSE AND FREQUENCY NOT SPECIFIED
     Route: 048
     Dates: start: 20040626, end: 20040722
  3. VOLTAREN [Concomitant]
     Dates: start: 20040207
  4. PREDNISOLONE [Concomitant]
     Dates: start: 20040219
  5. RISEDRONIC  ACID [Concomitant]

REACTIONS (7)
  - ARTHRITIS [None]
  - CONDITION AGGRAVATED [None]
  - JOINT EFFUSION [None]
  - PERITONITIS BACTERIAL [None]
  - PLEURAL EFFUSION [None]
  - PLEURISY [None]
  - STAPHYLOCOCCAL INFECTION [None]
